FAERS Safety Report 7755223-0 (Version None)
Quarter: 2011Q3

REPORT INFORMATION
  Report Type: 
  Country: None (occurrence: None)
  Receive Date: 20110914
  Receipt Date: 20110901
  Transmission Date: 20111222
  Serious: Yes (Hospitalization)
  Sender: FDA-Public Use
  Company Number: LTI2011A00251

PATIENT
  Age: 45 Year
  Sex: Male

DRUGS (6)
  1. ZOLPIDEM TARTRATE [Suspect]
     Dosage: 10 MG ORAL
     Route: 048
     Dates: start: 20110511, end: 20110528
  2. LANSOPRAZOLE [Suspect]
     Dosage: 15 MG (15 MG. 1 IN 1 D) ORAL
     Route: 048
     Dates: start: 20110511, end: 20110515
  3. LEVOTHYROXINE SODIUM [Concomitant]
  4. KENACORT [Suspect]
     Indication: THYROID DERMATOPATHY
     Dates: start: 20110411
  5. SOLU-MEDROL [Suspect]
     Indication: BASEDOW'S DISEASE
     Dosage: 500 MG INTRAVENOUS
     Route: 042
     Dates: start: 20110510, end: 20110601
  6. SOLU-MEDROL [Suspect]
     Indication: DISORDER OF ORBIT
     Dosage: 500 MG INTRAVENOUS
     Route: 042
     Dates: start: 20110510, end: 20110601

REACTIONS (2)
  - CYTOLYTIC HEPATITIS [None]
  - CHOLESTASIS [None]
